FAERS Safety Report 9452310 (Version 1)
Quarter: 2013Q3

REPORT INFORMATION
  Report Type: Spontaneous
  Country: US (occurrence: None)
  Receive Date: 20130808
  Receipt Date: 20130808
  Transmission Date: 20140515
  Serious: Yes (Disabling, Other)
  Sender: FDA-Public Use
  Company Number: None

PATIENT
  Age: 49 Year
  Sex: Female
  Weight: 58.06 kg

DRUGS (1)
  1. TERBINAFINE HCL [Suspect]
     Indication: ONYCHOMYCOSIS
     Dosage: ONE TABLET EVERY DAY MOUTH
     Route: 048
     Dates: start: 20130107, end: 20130620

REACTIONS (7)
  - Feeling abnormal [None]
  - Fatigue [None]
  - Myalgia [None]
  - Sleep disorder [None]
  - Visual impairment [None]
  - Muscle fatigue [None]
  - Incorrect drug administration duration [None]
